FAERS Safety Report 4311455-5 (Version None)
Quarter: 2004Q1

REPORT INFORMATION
  Report Type: 
  Country: None (occurrence: None)
  Receive Date: 20040303
  Receipt Date: 20040303
  Transmission Date: 20041129
  Serious: Yes (Other)
  Sender: FDA-Public Use
  Company Number: None

PATIENT
  Age: 89 Year
  Sex: Female

DRUGS (1)
  1. MORPHINE [Suspect]
     Indication: NEPHROLITHIASIS
     Dosage: 1MG/DOSS PCA
     Dates: start: 20030717

REACTIONS (1)
  - PRURITUS [None]
